FAERS Safety Report 15882985 (Version 1)
Quarter: 2019Q1

REPORT INFORMATION
  Report Type: Spontaneous
  Country: SE (occurrence: SE)
  Receive Date: 20190129
  Receipt Date: 20190129
  Transmission Date: 20190417
  Serious: Yes (Other)
  Sender: FDA-Public Use
  Company Number: SE-TEVA-2019-SE-1005033

PATIENT
  Age: 56 Year
  Sex: Female

DRUGS (1)
  1. PREDNISOLON ACTAVIS [Suspect]
     Active Substance: PREDNISOLONE
     Route: 065
     Dates: end: 20181130

REACTIONS (1)
  - Adrenal insufficiency [Unknown]

NARRATIVE: CASE EVENT DATE: 201501
